FAERS Safety Report 14342949 (Version 1)
Quarter: 2017Q4

REPORT INFORMATION
  Report Type: Spontaneous
  Country: US (occurrence: US)
  Receive Date: 20171230
  Receipt Date: 20171230
  Transmission Date: 20180321
  Serious: No
  Sender: FDA-Public Use
  Company Number: None

PATIENT
  Age: 64 Year
  Sex: Female
  Weight: 27 kg

DRUGS (9)
  1. FOLIC ACID. [Concomitant]
     Active Substance: FOLIC ACID
  2. TRANYLCYPROMINE SULFATE. [Suspect]
     Active Substance: TRANYLCYPROMINE SULFATE
     Indication: MAJOR DEPRESSION
     Route: 048
     Dates: start: 20110103, end: 20170520
  3. LEVOXYL [Concomitant]
     Active Substance: LEVOTHYROXINE SODIUM
  4. ARMOUR THYROID [Concomitant]
     Active Substance: THYROID, PORCINE
  5. BIOTIN [Concomitant]
     Active Substance: BIOTIN
  6. PARNATE [Concomitant]
     Active Substance: TRANYLCYPROMINE SULFATE
  7. XELJANZ [Concomitant]
     Active Substance: TOFACITINIB CITRATE
  8. TRAZODONE [Concomitant]
     Active Substance: TRAZODONE HYDROCHLORIDE
  9. VITAMIN B12 [Concomitant]
     Active Substance: CYANOCOBALAMIN

REACTIONS (2)
  - Arthralgia [None]
  - Exercise tolerance decreased [None]

NARRATIVE: CASE EVENT DATE: 20170103
